FAERS Safety Report 5833330-7 (Version None)
Quarter: 2008Q3

REPORT INFORMATION
  Report Type: 
  Country: None (occurrence: None)
  Receive Date: 20080804
  Receipt Date: 20080804
  Transmission Date: 20090109
  Serious: Yes (Other)
  Sender: FDA-Public Use
  Company Number: None

PATIENT
  Age: 73 Year
  Sex: Male
  Weight: 108.8633 kg

DRUGS (12)
  1. AMBIEN [Suspect]
     Indication: INSOMNIA
     Dosage: 10 MG ONCE 10 MG 047 ONCE 05 MG 047
     Dates: start: 20080703, end: 20080708
  2. LIPITOR [Concomitant]
  3. FLOMAX [Concomitant]
  4. DIOVAN [Concomitant]
  5. M.V.I. [Concomitant]
  6. FISH OIL, FLAX, BORAGE [Concomitant]
  7. ASPIRIN [Concomitant]
  8. LUPRON D [Concomitant]
  9. CASODEX [Concomitant]
  10. VENLAFAXINE HCL [Concomitant]
  11. PANTOPRAZOLE SODIUM [Concomitant]
  12. NAMENDA [Concomitant]

REACTIONS (6)
  - ABNORMAL BEHAVIOUR [None]
  - DISORIENTATION [None]
  - DYSKINESIA [None]
  - HANGOVER [None]
  - SOMNOLENCE [None]
  - SPEECH DISORDER [None]
